FAERS Safety Report 5207147-0 (Version None)
Quarter: 2007Q1

REPORT INFORMATION
  Report Type: 
  Country: None (occurrence: None)
  Receive Date: 20070112
  Receipt Date: 20070105
  Transmission Date: 20070707
  Serious: Yes (Hospitalization)
  Sender: FDA-Public Use
  Company Number: CA-ROCHE-477268

PATIENT
  Age: 68 Year
  Sex: Male

DRUGS (4)
  1. XELODA [Suspect]
     Route: 048
     Dates: start: 20060615
  2. XELODA [Suspect]
     Route: 048
     Dates: end: 20061215
  3. STOOL SOFTENER [Concomitant]
     Route: 048
  4. 1 CONCOMITANT DRUG [Concomitant]
     Indication: PAIN

REACTIONS (2)
  - INTESTINAL OBSTRUCTION [None]
  - PALMAR-PLANTAR ERYTHRODYSAESTHESIA SYNDROME [None]
